FAERS Safety Report 8459456-X (Version None)
Quarter: 2012Q2

REPORT INFORMATION
  Report Type: 
  Country: None (occurrence: None)
  Receive Date: 20120622
  Receipt Date: 20120615
  Transmission Date: 20120825
  Serious: Yes (Hospitalization)
  Sender: FDA-Public Use
  Company Number: AU-B.I. PHARMACEUTICALS,INC./RIDGEFIELD-2012-AU-01124AU

PATIENT
  Age: 72 Year
  Sex: Male
  Weight: 130 kg

DRUGS (5)
  1. CARVEDILOL [Concomitant]
  2. PRADAXA [Suspect]
  3. ATACAND HCT [Concomitant]
  4. PRADAXA [Suspect]
  5. ISOPTIN [Concomitant]

REACTIONS (5)
  - EPISTAXIS [None]
  - HAEMATURIA [None]
  - DYSPNOEA [None]
  - OEDEMA PERIPHERAL [None]
  - CHEST PAIN [None]
